FAERS Safety Report 14873667 (Version 2)
Quarter: 2018Q2

REPORT INFORMATION
  Report Type: Report from Study
  Country: None (occurrence: CH)
  Receive Date: 20180510
  Receipt Date: 20180525
  Transmission Date: 20180711
  Serious: Yes (Death)
  Sender: FDA-Public Use
  Company Number: CH-ABBVIE-18K-151-2350525-00

PATIENT
  Age: 53 Year
  Sex: Male

DRUGS (4)
  1. HUMIRA [Suspect]
     Active Substance: ADALIMUMAB
     Indication: RHEUMATIC DISORDER
     Route: 058
     Dates: start: 200905
  2. HUMIRA [Suspect]
     Active Substance: ADALIMUMAB
     Indication: SPONDYLITIS
  3. HUMIRA [Suspect]
     Active Substance: ADALIMUMAB
     Indication: POLYARTHRITIS
  4. HUMIRA [Suspect]
     Active Substance: ADALIMUMAB
     Indication: STILL^S DISEASE

REACTIONS (14)
  - Osteoarthritis [Unknown]
  - Hypertension [Unknown]
  - Musculoskeletal pain [Unknown]
  - Hypotension [Unknown]
  - Scoliosis [Unknown]
  - Osteochondrosis [Unknown]
  - Joint range of motion decreased [Unknown]
  - Tissue irritation [Unknown]
  - Spondylolisthesis [Unknown]
  - Back pain [Unknown]
  - Spinal osteoarthritis [Unknown]
  - Death [Fatal]
  - HLA-B*27 positive [Unknown]
  - Gouty arthritis [Recovered/Resolved]

NARRATIVE: CASE EVENT DATE: 201705
